FAERS Safety Report 9348025 (Version 4)
Quarter: 2013Q3

REPORT INFORMATION
  Report Type: Spontaneous
  Country: US (occurrence: US)
  Receive Date: 20130614
  Receipt Date: 20130820
  Transmission Date: 20140515
  Serious: No
  Sender: FDA-Public Use
  Company Number: US-009507513-1305USA014186

PATIENT
  Age: 27 Year
  Sex: Female
  Weight: 112.2 kg

DRUGS (1)
  1. IMPLANON [Suspect]
     Indication: CONTRACEPTION
     Dosage: 1 STANDARD DOSE OF 1
     Route: 059
     Dates: start: 20120221, end: 20130523

REACTIONS (6)
  - Implant site pain [Recovered/Resolved]
  - Application site discomfort [Recovered/Resolved]
  - Weight increased [Unknown]
  - Device breakage [Recovered/Resolved]
  - Device difficult to use [Recovered/Resolved]
  - Medical device complication [Recovered/Resolved]
